FAERS Safety Report 8392584-6 (Version None)
Quarter: 2012Q2

REPORT INFORMATION
  Report Type: 
  Country: None (occurrence: None)
  Receive Date: 20120529
  Receipt Date: 20120518
  Transmission Date: 20120825
  Serious: Yes (Other)
  Sender: FDA-Public Use
  Company Number: JP-VERTEX PHARMACEUTICALS INC.-AE-2012-007735

PATIENT
  Age: 49 Year
  Sex: Male

DRUGS (7)
  1. TELAVIC (TELAPREVIR) [Suspect]
     Indication: HEPATITIS C
     Route: 048
     Dates: start: 20120214
  2. REBETOL [Concomitant]
     Indication: HEPATITIS C
     Route: 048
     Dates: start: 20120214, end: 20120305
  3. URSO 250 [Concomitant]
     Route: 048
     Dates: end: 20120227
  4. REBETOL [Concomitant]
     Route: 048
     Dates: start: 20120306
  5. FEBURIC [Concomitant]
     Route: 048
     Dates: start: 20120424, end: 20120501
  6. LOXOPROFEN [Concomitant]
     Route: 048
     Dates: start: 20120215
  7. PEG-INTRON [Concomitant]
     Indication: HEPATITIS C
     Route: 051
     Dates: start: 20120214

REACTIONS (8)
  - RHABDOMYOLYSIS [None]
  - BLOOD CREATINE INCREASED [None]
  - PRURITUS [None]
  - INJECTION SITE ERYTHEMA [None]
  - DYSGEUSIA [None]
  - CONJUNCTIVAL HYPERAEMIA [None]
  - HYPERURICAEMIA [None]
  - INSOMNIA [None]
